FAERS Safety Report 9726602 (Version 1)
Quarter: 2013Q4

REPORT INFORMATION
  Report Type: Spontaneous
  Country: JP (occurrence: JP)
  Receive Date: 20131203
  Receipt Date: 20131203
  Transmission Date: 20140711
  Serious: Yes (Other)
  Sender: FDA-Public Use
  Company Number: JP-GLAXOSMITHKLINE-B0949218A

PATIENT
  Age: 31 Year
  Sex: Female

DRUGS (5)
  1. LAMICTAL [Suspect]
     Indication: BIPOLAR DISORDER
     Route: 048
     Dates: start: 20110805
  2. LAMICTAL [Suspect]
     Indication: PRODUCT USED FOR UNKNOWN INDICATION
     Route: 048
     Dates: start: 20131123, end: 20131123
  3. ZYPREXA [Concomitant]
     Route: 048
  4. LEXAPRO [Concomitant]
     Route: 048
  5. SOLANAX [Concomitant]
     Route: 048

REACTIONS (3)
  - Suicide attempt [Unknown]
  - Rash [Not Recovered/Not Resolved]
  - Intentional overdose [Unknown]
